FAERS Safety Report 20763083 (Version 1)
Quarter: 2022Q2

REPORT INFORMATION
  Report Type: Spontaneous
  Country: US (occurrence: US)
  Receive Date: 20220428
  Receipt Date: 20220428
  Transmission Date: 20220721
  Serious: No
  Sender: FDA-Public Use
  Company Number: US-PFIZER INC-202101789088

PATIENT
  Age: 55 Year
  Sex: Male
  Weight: 104.33 kg

DRUGS (1)
  1. CHANTIX [Suspect]
     Active Substance: VARENICLINE TARTRATE
     Indication: Smoking cessation therapy
     Dosage: 1 MG, DAILY [1MG, EVERY MORNING AND EVERY NIGHT]
     Dates: start: 2009

REACTIONS (4)
  - Therapeutic product effect decreased [Unknown]
  - Recalled product administered [Unknown]
  - Wrong technique in product usage process [Unknown]
  - Intentional product misuse [Unknown]
